FAERS Safety Report 8257446-3 (Version None)
Quarter: 2012Q2

REPORT INFORMATION
  Report Type: 
  Country: None (occurrence: None)
  Receive Date: 20120403
  Receipt Date: 20120313
  Transmission Date: 20120825
  Serious: Yes (Hospitalization)
  Sender: FDA-Public Use
  Company Number: CA-ROCHE-1046563

PATIENT
  Sex: Female
  Weight: 39 kg

DRUGS (6)
  1. METHOTREXATE [Concomitant]
  2. ACTEMRA [Suspect]
     Indication: JUVENILE ARTHRITIS
     Route: 042
     Dates: start: 20111014
  3. VITAMIN D [Concomitant]
  4. NAPROXEN [Concomitant]
  5. FOLIC ACID [Concomitant]
  6. PREDNISONE TAB [Concomitant]

REACTIONS (11)
  - LIVER FUNCTION TEST ABNORMAL [None]
  - VOMITING [None]
  - HYPOCALCAEMIA [None]
  - IMMUNOSUPPRESSION [None]
  - GASTROENTERITIS [None]
  - DRUG INEFFECTIVE [None]
  - LOSS OF CONSCIOUSNESS [None]
  - DIARRHOEA [None]
  - PLEURAL EFFUSION [None]
  - HYPOKALAEMIA [None]
  - SEPTIC SHOCK [None]
